FAERS Safety Report 9416924 (Version 1)
Quarter: 2013Q3

REPORT INFORMATION
  Report Type: Spontaneous
  Country: US (occurrence: US)
  Receive Date: 20130724
  Receipt Date: 20130724
  Transmission Date: 20140515
  Serious: Yes (Death, Hospitalization)
  Sender: FDA-Public Use
  Company Number: US-RANBAXY-2013US-71494

PATIENT
  Age: 28 Year
  Sex: Female

DRUGS (7)
  1. IBUPROFEN [Suspect]
     Indication: LIGAMENT SPRAIN
     Dosage: 800 MG, TID
     Route: 065
  2. IBUPROFEN [Suspect]
     Indication: LIGAMENT SPRAIN
  3. IBUPROFEN [Suspect]
     Indication: CONTUSION
  4. METAXALONE [Suspect]
     Indication: MUSCLE RELAXANT THERAPY
     Dosage: 800 MG, TID
     Route: 065
  5. METHOCARBAMOL [Suspect]
     Indication: MUSCLE RELAXANT THERAPY
     Dosage: 750 MG, QID
     Route: 065
  6. VALDECOXIB [Suspect]
     Indication: PRODUCT USED FOR UNKNOWN INDICATION
     Dosage: 10 MG, DAILY
     Route: 065
  7. CYCLOBENZAPRINE [Concomitant]
     Indication: PRODUCT USED FOR UNKNOWN INDICATION
     Route: 065

REACTIONS (7)
  - Renal failure [Fatal]
  - Respiratory failure [Fatal]
  - Secondary hypertension [Fatal]
  - Haemorrhage intracranial [Fatal]
  - Cardiomyopathy [Fatal]
  - Diabetes mellitus [Fatal]
  - Gastritis [Unknown]
